FAERS Safety Report 4675407-8 (Version None)
Quarter: 2005Q2

REPORT INFORMATION
  Report Type: 
  Country: None (occurrence: None)
  Receive Date: 20050527
  Receipt Date: 20050224
  Transmission Date: 20051028
  Serious: No
  Sender: FDA-Public Use
  Company Number: US-BRISTOL-MYERS SQUIBB COMPANY-12875209

PATIENT
  Age: 49 Year
  Sex: Female

DRUGS (7)
  1. ABILIFY [Suspect]
     Dosage: DOSE REDUCED TO 10 MG/DAY
  2. PAXIL [Interacting]
     Indication: MENTAL DISORDER
  3. BUSPAR [Concomitant]
     Indication: MENTAL DISORDER
  4. VALIUM [Concomitant]
     Indication: MENTAL DISORDER
  5. SYNTHROID [Concomitant]
  6. CONTRACEPTIVE [Concomitant]
  7. ALLEGRA [Concomitant]
     Indication: ASTHMA

REACTIONS (3)
  - DRUG INTERACTION [None]
  - MEDICATION ERROR [None]
  - URINARY RETENTION [None]
